FAERS Safety Report 22341864 (Version 3)
Quarter: 2023Q2

REPORT INFORMATION
  Report Type: Spontaneous
  Country: US (occurrence: US)
  Receive Date: 20230518
  Receipt Date: 20230630
  Transmission Date: 20230722
  Serious: No
  Sender: FDA-Public Use
  Company Number: US-ALKERMES INC.-ALK-2023-001999

PATIENT
  Age: 29 Year
  Sex: Female
  Weight: 70.567 kg

DRUGS (8)
  1. ARISTADA [Suspect]
     Active Substance: ARIPIPRAZOLE LAUROXIL
     Indication: Schizoaffective disorder bipolar type
     Dosage: 662 MILLIGRAM, Q3WK
     Route: 030
     Dates: start: 20230419
  2. ARISTADA [Suspect]
     Active Substance: ARIPIPRAZOLE LAUROXIL
     Indication: Bipolar disorder
     Dosage: 882 MILLIGRAM, Q4WK
     Route: 030
  3. CANNABIS SATIVA SUBSP. INDICA TOP [Suspect]
     Active Substance: CANNABIS SATIVA SUBSP. INDICA TOP
     Indication: Product used for unknown indication
     Dosage: UNK
     Route: 065
  4. LYBALVI [Suspect]
     Active Substance: OLANZAPINE\SAMIDORPHAN L-MALATE
     Indication: Affective disorder
     Dosage: 5/10 MILLIGRAM, HS
     Route: 048
     Dates: start: 20230419
  5. VYVANSE [Concomitant]
     Active Substance: LISDEXAMFETAMINE DIMESYLATE
     Indication: Attention deficit hyperactivity disorder
     Dosage: 20 MILLIGRAM, QD
     Route: 048
     Dates: start: 20230118
  6. CLONAZEPAM [Concomitant]
     Active Substance: CLONAZEPAM
     Indication: Anxiety
     Dosage: 1 MILLIGRAM, AS NEEDED
     Route: 048
     Dates: start: 20230411
  7. PRAZOSIN [Concomitant]
     Active Substance: PRAZOSIN
     Indication: Sleep disorder
     Dosage: 2 MILLIGRAM, HS
     Route: 048
     Dates: start: 20221122
  8. PRAZOSIN [Concomitant]
     Active Substance: PRAZOSIN
     Indication: Nightmare

REACTIONS (5)
  - Condition aggravated [Recovered/Resolved]
  - Off label use [Recovered/Resolved]
  - Therapeutic response shortened [Unknown]
  - Substance use [Unknown]
  - Seizure [Recovering/Resolving]

NARRATIVE: CASE EVENT DATE: 20230505
